FAERS Safety Report 7216300-6 (Version None)
Quarter: 2011Q1

REPORT INFORMATION
  Report Type: 
  Country: None (occurrence: None)
  Receive Date: 20110107
  Receipt Date: 20101229
  Transmission Date: 20110831
  Serious: Yes (Other)
  Sender: FDA-Public Use
  Company Number: AU-JNJFOC-20101106780

PATIENT
  Sex: Male

DRUGS (3)
  1. STELARA [Suspect]
     Indication: PRODUCT USED FOR UNKNOWN INDICATION
     Route: 058
  2. STELARA [Suspect]
     Route: 058
  3. STELARA [Suspect]
     Route: 058

REACTIONS (12)
  - DEPRESSION [None]
  - DIARRHOEA [None]
  - PRURITUS [None]
  - FATIGUE [None]
  - MYALGIA [None]
  - UPPER RESPIRATORY TRACT INFECTION [None]
  - HAEMATOCHEZIA [None]
  - HEADACHE [None]
  - OROPHARYNGEAL PAIN [None]
  - NASAL CONGESTION [None]
  - DIZZINESS [None]
  - BACK PAIN [None]
